FAERS Safety Report 19294266 (Version 1)
Quarter: 2021Q2

REPORT INFORMATION
  Report Type: Spontaneous
  Country: US (occurrence: US)
  Receive Date: 20210524
  Receipt Date: 20210524
  Transmission Date: 20210717
  Serious: Yes (Other)
  Sender: FDA-Public Use
  Company Number: US-GLAXOSMITHKLINE-US2021GSK107204

PATIENT
  Sex: Male

DRUGS (10)
  1. ZANTAC [Suspect]
     Active Substance: RANITIDINE HYDROCHLORIDE
     Indication: GASTROOESOPHAGEAL REFLUX DISEASE
     Dosage: 150 MG, OCCASIONAL
     Route: 065
     Dates: start: 199601, end: 201301
  2. ZANTAC [Suspect]
     Active Substance: RANITIDINE HYDROCHLORIDE
     Indication: GASTROOESOPHAGEAL REFLUX DISEASE
     Dosage: 150 MG, OCCASIONAL
     Route: 065
     Dates: start: 199601, end: 201301
  3. RANITIDINE. [Suspect]
     Active Substance: RANITIDINE
     Indication: THYROID DISORDER
     Dosage: 75 MG, QD, 2011?2013 WAS TAKEN INTERCHANGEABLY WITH ZANTAC 1?2 TIMES WEEKLY
     Route: 065
     Dates: start: 199901, end: 201301
  4. RANITIDINE. [Suspect]
     Active Substance: RANITIDINE
     Indication: GASTROOESOPHAGEAL REFLUX DISEASE
     Dosage: 150 MG, QD, 2011?2013 WAS TAKEN INTERCHANGEABLY WITH ZANTAC 1?2 TIMES WEEKLY
     Route: 065
     Dates: start: 199901, end: 201301
  5. RANITIDINE HYDROCHLORIDE. [Suspect]
     Active Substance: RANITIDINE HYDROCHLORIDE
     Indication: GASTROOESOPHAGEAL REFLUX DISEASE
  6. RANITIDINE. [Suspect]
     Active Substance: RANITIDINE
     Indication: THYROID DISORDER
     Dosage: 75 MG, QD, 2011?2013 WAS TAKEN INTERCHANGEABLY WITH ZANTAC 1?2 TIMES WEEKLY
     Route: 065
     Dates: start: 199901, end: 201301
  7. RANITIDINE HYDROCHLORIDE. [Suspect]
     Active Substance: RANITIDINE HYDROCHLORIDE
     Indication: THYROID DISORDER
     Dosage: 150 MG, 1?2 TIMES A WEEK
     Route: 065
     Dates: start: 201101, end: 201301
  8. ZANTAC [Suspect]
     Active Substance: RANITIDINE HYDROCHLORIDE
     Indication: THYROID DISORDER
     Dosage: 75 MG, OCCASIONAL
     Route: 065
     Dates: start: 199601, end: 201301
  9. ZANTAC [Suspect]
     Active Substance: RANITIDINE HYDROCHLORIDE
     Indication: THYROID DISORDER
     Dosage: 75 MG, OCCASIONAL
     Route: 065
     Dates: start: 199601, end: 201301
  10. RANITIDINE. [Suspect]
     Active Substance: RANITIDINE
     Indication: GASTROOESOPHAGEAL REFLUX DISEASE
     Dosage: 150 MG, QD, 2011?2013 WAS TAKEN INTERCHANGEABLY WITH ZANTAC 1?2 TIMES WEEKLY
     Route: 065
     Dates: start: 199901, end: 201301

REACTIONS (1)
  - Renal cancer [Unknown]
